FAERS Safety Report 15963583 (Version 2)
Quarter: 2019Q1

REPORT INFORMATION
  Report Type: Spontaneous
  Country: US (occurrence: US)
  Receive Date: 20190214
  Receipt Date: 20190219
  Transmission Date: 20190417
  Serious: No
  Sender: FDA-Public Use
  Company Number: US-PFIZER INC-2019058070

PATIENT
  Age: 54 Year
  Sex: Male
  Weight: 61.23 kg

DRUGS (1)
  1. XANAX [Suspect]
     Active Substance: ALPRAZOLAM
     Dosage: UNK
     Dates: start: 2018

REACTIONS (1)
  - Sexual abuse [Unknown]

NARRATIVE: CASE EVENT DATE: 20180625
